FAERS Safety Report 17125090 (Version 1)
Quarter: 2019Q4

REPORT INFORMATION
  Report Type: Spontaneous
  Country: US (occurrence: US)
  Receive Date: 20191206
  Receipt Date: 20191206
  Transmission Date: 20200122
  Serious: No
  Sender: FDA-Public Use
  Company Number: US-TEIKOKU PHARMA USA-TPU2019-00809

PATIENT
  Sex: Female

DRUGS (2)
  1. LIDOCAINE PATCH [Suspect]
     Active Substance: LIDOCAINE
     Indication: NOTALGIA PARAESTHETICA
     Dosage: 2 PATCHES DAILY; DOWN THE BACK NEXT TO THE SPINE UNDER THE BRA
     Route: 061
     Dates: start: 1999
  2. LIDOCAINE. [Suspect]
     Active Substance: LIDOCAINE
     Indication: NOTALGIA PARAESTHETICA

REACTIONS (2)
  - Drug ineffective for unapproved indication [Unknown]
  - Inability to afford medication [Unknown]
